FAERS Safety Report 9564910 (Version 2)
Quarter: 2013Q4

REPORT INFORMATION
  Report Type: Report from Study
  Country: AT (occurrence: AT)
  Receive Date: 20130930
  Receipt Date: 20131007
  Transmission Date: 20140711
  Serious: Yes (Hospitalization)
  Sender: FDA-Public Use
  Company Number: AT-ROCHE-1278388

PATIENT
  Age: 83 Year
  Sex: Male
  Weight: 101.2 kg

DRUGS (12)
  1. VISMODEGIB [Suspect]
     Indication: BASAL CELL CARCINOMA
     Route: 048
     Dates: start: 20120802
  2. LASIX [Concomitant]
     Indication: CARDIAC FAILURE
     Route: 065
     Dates: start: 200601
  3. LASIX [Concomitant]
     Indication: OEDEMA PERIPHERAL
     Route: 065
     Dates: start: 20130726
  4. MENCORD [Concomitant]
     Indication: HYPERTENSION
     Route: 065
     Dates: start: 200001, end: 20130322
  5. MENCORD [Concomitant]
     Route: 065
     Dates: start: 20130323
  6. CARVEDILOL [Concomitant]
     Indication: HYPERTENSION
     Route: 065
     Dates: start: 200001
  7. THROMBO ASS [Concomitant]
     Indication: PROPHYLAXIS
     Route: 065
     Dates: start: 201001
  8. SODIUM CHLORIDE [Concomitant]
     Indication: HYPONATRAEMIA
     Route: 065
     Dates: start: 20120722, end: 20120827
  9. NOVALGIN [Concomitant]
     Indication: PAIN IN EXTREMITY
     Route: 065
     Dates: start: 20121220
  10. AMLODIPINE [Concomitant]
     Indication: HYPERTENSION
     Route: 065
     Dates: start: 20130323
  11. MENCORD [Concomitant]
     Indication: HYPERTENSION
     Route: 065
     Dates: start: 200001, end: 20130322
  12. GASTROLOC [Concomitant]
     Dosage: ONCE DAILY. REPORTED AS GASTROLOC HEXAL
     Route: 065
     Dates: start: 201001

REACTIONS (1)
  - Dyspnoea [Unknown]
